FAERS Safety Report 6288464-2 (Version None)
Quarter: 2009Q3

REPORT INFORMATION
  Report Type: 
  Country: None (occurrence: None)
  Receive Date: 20090729
  Receipt Date: 20090721
  Transmission Date: 20100115
  Serious: Yes (Hospitalization)
  Sender: FDA-Public Use
  Company Number: B0583972A

PATIENT
  Sex: Male

DRUGS (5)
  1. EPZICOM [Suspect]
     Indication: HIV INFECTION
     Route: 048
     Dates: start: 20080108
  2. ZITHROMAX [Suspect]
     Indication: OPPORTUNISTIC INFECTION PROPHYLAXIS
     Route: 048
     Dates: start: 20080108, end: 20080508
  3. NORVIR [Concomitant]
     Indication: HIV INFECTION
     Route: 048
     Dates: start: 20080108
  4. REYATAZ [Concomitant]
     Indication: HIV INFECTION
     Route: 048
     Dates: start: 20080108
  5. BAKTAR [Concomitant]
     Indication: ANTIFUNGAL PROPHYLAXIS
     Dosage: 1000MG PER DAY
     Route: 048
     Dates: start: 20080108, end: 20080721

REACTIONS (1)
  - LIVER DISORDER [None]
